FAERS Safety Report 4349907-4 (Version None)
Quarter: 2004Q2

REPORT INFORMATION
  Report Type: 
  Country: None (occurrence: None)
  Receive Date: 20040426
  Receipt Date: 20040415
  Transmission Date: 20050107
  Serious: Yes (Other)
  Sender: FDA-Public Use
  Company Number: 2004203415US

PATIENT
  Sex: Female

DRUGS (2)
  1. DEPO-PROVERA [Suspect]
  2. PREVACID [Suspect]

REACTIONS (6)
  - DYSGEUSIA [None]
  - PAROSMIA [None]
  - PHOTOSENSITIVITY REACTION [None]
  - SKIN IRRITATION [None]
  - SWELLING FACE [None]
  - SWOLLEN TONGUE [None]
